FAERS Safety Report 4576528-0 (Version None)
Quarter: 2005Q1

REPORT INFORMATION
  Report Type: 
  Country: None (occurrence: None)
  Receive Date: 20050119
  Receipt Date: 20040426
  Transmission Date: 20050727
  Serious: Yes (Other)
  Sender: FDA-Public Use
  Company Number: A03200401324

PATIENT
  Sex: Male

DRUGS (3)
  1. PLAVIX [Suspect]
     Indication: ANGINA UNSTABLE
     Dosage: 75 MG QD - ORAL
     Route: 048
  2. PLAVIX [Suspect]
     Indication: MYOCARDIAL INFARCTION
     Dosage: 75 MG QD - ORAL
     Route: 048
  3. PLAVIX [Suspect]
     Indication: PERIPHERAL VASCULAR DISORDER
     Dosage: 75 MG QD - ORAL
     Route: 048

REACTIONS (2)
  - GASTRIC ULCER [None]
  - GASTROINTESTINAL HAEMORRHAGE [None]
